FAERS Safety Report 12795490 (Version 11)
Quarter: 2018Q3

REPORT INFORMATION
  Report Type: Spontaneous
  Country: US (occurrence: US)
  Receive Date: 20160929
  Receipt Date: 20180726
  Transmission Date: 20181010
  Serious: Yes (Hospitalization, Disabling)
  Sender: FDA-Public Use
  Company Number: US-ACTELION-A-US2016-142642

PATIENT
  Age: 89 Year
  Sex: Female

DRUGS (19)
  1. ADEMPAS [Suspect]
     Active Substance: RIOCIGUAT
     Indication: PRODUCT USED FOR UNKNOWN INDICATION
     Dosage: 1 MG, TID
     Route: 048
  2. DIGOXIN. [Concomitant]
     Active Substance: DIGOXIN
  3. ZOLOFT [Concomitant]
     Active Substance: SERTRALINE HYDROCHLORIDE
  4. METHYLPREDNISOLONE. [Concomitant]
     Active Substance: METHYLPREDNISOLONE
  5. VITAMIN B6 [Concomitant]
     Active Substance: PYRIDOXINE HYDROCHLORIDE
  6. OPSUMIT [Suspect]
     Active Substance: MACITENTAN
     Indication: PULMONARY ARTERIAL HYPERTENSION
     Dosage: 10 MG, QD
     Route: 048
     Dates: start: 20160524
  7. GABAPENTIN. [Concomitant]
     Active Substance: GABAPENTIN
  8. BUMEX [Concomitant]
     Active Substance: BUMETANIDE
  9. POTASSIUM CHLORIDE. [Concomitant]
     Active Substance: POTASSIUM CHLORIDE
  10. ASPIRIN. [Concomitant]
     Active Substance: ASPIRIN
  11. SYMBICORT [Concomitant]
     Active Substance: BUDESONIDE\FORMOTEROL FUMARATE DIHYDRATE
  12. DILTIAZEM CD [Concomitant]
     Active Substance: DILTIAZEM
  13. OMEPRAZOLE. [Concomitant]
     Active Substance: OMEPRAZOLE
  14. SINGULAIR [Concomitant]
     Active Substance: MONTELUKAST SODIUM
  15. TRAVATAN Z [Concomitant]
     Active Substance: TRAVOPROST
  16. MULTIVITAMIN [Concomitant]
     Active Substance: VITAMINS
  17. SPIRIVA [Concomitant]
     Active Substance: TIOTROPIUM BROMIDE MONOHYDRATE
  18. OXYGEN. [Concomitant]
     Active Substance: OXYGEN
  19. ADEMPAS [Suspect]
     Active Substance: RIOCIGUAT
     Dosage: 1 MG, BID
     Route: 048

REACTIONS (18)
  - Dizziness [Unknown]
  - Somnolence [Not Recovered/Not Resolved]
  - Dry throat [Unknown]
  - Dyspepsia [Unknown]
  - Fatigue [Not Recovered/Not Resolved]
  - Tremor [Recovered/Resolved]
  - Anxiety [Recovered/Resolved]
  - Herpes zoster [Recovered/Resolved]
  - Nasopharyngitis [Unknown]
  - Malaise [Not Recovered/Not Resolved]
  - Urine viscosity abnormal [Unknown]
  - Unevaluable event [Unknown]
  - Pruritus [Unknown]
  - Dyspnoea [Unknown]
  - Feeling cold [Recovered/Resolved]
  - Dysuria [Unknown]
  - Blood glucose increased [Unknown]
  - Fungal infection [Unknown]

NARRATIVE: CASE EVENT DATE: 20160915
